FAERS Safety Report 7149536-3 (Version None)
Quarter: 2010Q4

REPORT INFORMATION
  Report Type: 
  Country: None (occurrence: None)
  Receive Date: 20101209
  Receipt Date: 20101203
  Transmission Date: 20110411
  Serious: Yes (Other)
  Sender: FDA-Public Use
  Company Number: DE-PFIZER INC-DE-WYE-G06825110

PATIENT
  Age: 68 Year
  Sex: Male
  Weight: 85 kg

DRUGS (6)
  1. VENLAFAXINE HCL [Suspect]
     Indication: DEPRESSION
     Dosage: 150 MG, 1X/DAY
     Dates: start: 20060101, end: 20100101
  2. VENLAFAXINE HCL [Suspect]
     Dosage: 225 MG, 1X/DAY
     Dates: start: 20100101
  3. AMISULPRIDE [Concomitant]
     Indication: DEPRESSION
     Dosage: 1200 MG/DAY
  4. TAMSULOSIN [Concomitant]
     Dosage: 40 MG/DAY
  5. SIMVASTATIN [Concomitant]
     Dosage: 40 MG/DAY
  6. PROMETHAZINE [Concomitant]
     Indication: SEDATION
     Dosage: 150 MG/DAY

REACTIONS (1)
  - ATRIAL FLUTTER [None]
